FAERS Safety Report 4494233-6 (Version None)
Quarter: 2004Q4

REPORT INFORMATION
  Report Type: 
  Country: None (occurrence: None)
  Receive Date: 20041102
  Receipt Date: 20041022
  Transmission Date: 20050328
  Serious: Yes (Hospitalization)
  Sender: FDA-Public Use
  Company Number: 2004-121637-NL

PATIENT
  Age: 62 Year
  Sex: Female

DRUGS (2)
  1. MIRTAZAPINE [Suspect]
     Indication: DEPRESSION
     Dosage: 30 MG
     Dates: start: 20040920, end: 20041004
  2. CYAMEMAZINE [Concomitant]

REACTIONS (3)
  - EPILEPSY [None]
  - HYPONATRAEMIA [None]
  - LUNG DISORDER [None]
